FAERS Safety Report 7549810-2 (Version None)
Quarter: 2011Q2

REPORT INFORMATION
  Report Type: 
  Country: None (occurrence: None)
  Receive Date: 20110615
  Receipt Date: 20110531
  Transmission Date: 20111010
  Serious: Yes (Hospitalization)
  Sender: FDA-Public Use
  Company Number: CA-JNJFOC-20110601350

PATIENT
  Sex: Female
  Weight: 46 kg

DRUGS (1)
  1. REMICADE [Suspect]
     Indication: BEHCET'S SYNDROME
     Route: 042
     Dates: start: 20040101, end: 20101130

REACTIONS (1)
  - INTESTINAL PERFORATION [None]
